FAERS Safety Report 5636930-2 (Version None)
Quarter: 2008Q1

REPORT INFORMATION
  Report Type: 
  Country: None (occurrence: None)
  Receive Date: 20080225
  Receipt Date: 20080214
  Transmission Date: 20080703
  Serious: Yes (Other)
  Sender: FDA-Public Use
  Company Number: GB-ROCHE-547637

PATIENT
  Age: 66 Year
  Sex: Female
  Weight: 73.4 kg

DRUGS (5)
  1. ORLISTAT [Suspect]
     Indication: OBESITY
     Route: 048
     Dates: start: 20070831, end: 20080124
  2. ASPIRIN [Concomitant]
     Dosage: INDICATION PROPHYLACTIC DOSE. START DATE REPORTED AS 11 YEARS AGO
     Route: 048
     Dates: start: 19970101
  3. MOTENS [Concomitant]
     Indication: HYPERTENSION
     Dosage: DRUG NAME MOTEN
     Route: 048
  4. GOPTEN [Concomitant]
     Indication: HYPERTENSION
     Route: 048
  5. SIMVASTATIN [Concomitant]
     Route: 048

REACTIONS (2)
  - CEREBROVASCULAR ACCIDENT [None]
  - HEMIPARESIS [None]
